FAERS Safety Report 7156132-0 (Version None)
Quarter: 2010Q4

REPORT INFORMATION
  Report Type: 
  Country: None (occurrence: None)
  Receive Date: 20101123
  Receipt Date: 20101015
  Transmission Date: 20110411
  Serious: Yes (Hospitalization, Other)
  Sender: FDA-Public Use
  Company Number: 020647

PATIENT
  Age: 20 Year
  Sex: Female

DRUGS (3)
  1. CERTOLIZUMAB PEGOL [Suspect]
     Indication: CROHN'S DISEASE
     Dosage: (SUBCUTANEOUS)
  2. MERCAPTOPURINE [Suspect]
     Indication: CROHN'S DISEASE
  3. MESALAMINE [Suspect]
     Indication: CROHN'S DISEASE

REACTIONS (1)
  - PANCYTOPENIA [None]
